FAERS Safety Report 5741876-5 (Version None)
Quarter: 2008Q2

REPORT INFORMATION
  Report Type: 
  Country: None (occurrence: None)
  Receive Date: 20080515
  Receipt Date: 20080429
  Transmission Date: 20081010
  Serious: Yes (Hospitalization)
  Sender: FDA-Public Use
  Company Number: 2008BI008582

PATIENT
  Age: 38 Year
  Sex: Female
  Weight: 69.9991 kg

DRUGS (7)
  1. TYSABRI [Suspect]
     Indication: MULTIPLE SCLEROSIS
     Dosage: 300 MG QM, IV
     Route: 042
     Dates: start: 20070213
  2. TYLENOL [Concomitant]
  3. SERTRALINE [Concomitant]
  4. ESOMEPRAZOLE MAGNESIUM [Concomitant]
  5. ETODOLAC [Concomitant]
  6. PREMARIN [Concomitant]
  7. PROMETHAZINE [Concomitant]

REACTIONS (20)
  - ABDOMINAL PAIN [None]
  - ASTHENIA [None]
  - BLOOD CHLORIDE INCREASED [None]
  - BLOOD UREA DECREASED [None]
  - CHOLELITHIASIS [None]
  - DIARRHOEA [None]
  - DIZZINESS [None]
  - DRUG SCREEN POSITIVE [None]
  - GASTROINTESTINAL DISORDER [None]
  - HEPATIC STEATOSIS [None]
  - HEPATITIS ACUTE [None]
  - HEPATOTOXICITY [None]
  - MESENTERIC FIBROSIS [None]
  - MIGRAINE [None]
  - MYALGIA [None]
  - NEPHROLITHIASIS [None]
  - PLEURAL EFFUSION [None]
  - PYREXIA [None]
  - RENAL CYST [None]
  - SCAN ABDOMEN ABNORMAL [None]
